FAERS Safety Report 6653533-1 (Version None)
Quarter: 2010Q1

REPORT INFORMATION
  Report Type: 
  Country: None (occurrence: None)
  Receive Date: 20100323
  Receipt Date: 20100323
  Transmission Date: 20100710
  Serious: No
  Sender: FDA-Public Use
  Company Number: None

PATIENT
  Age: 66 Year
  Sex: Female

DRUGS (6)
  1. ISONIAZID [Suspect]
     Dosage: 300MG/QDAY
     Dates: start: 20071101, end: 20080623
  2. PYRAZINAMIDE [Suspect]
     Dosage: 500MG/QDAY
     Dates: start: 20071101, end: 20080623
  3. RIFAMPIN [Suspect]
     Dosage: 600MG/QDAY
     Dates: start: 20071101, end: 20080623
  4. PYRIDOXINE [Concomitant]
  5. TAMOXIFEN CITRATE [Concomitant]
  6. CRESTOR [Concomitant]

REACTIONS (7)
  - ANTINUCLEAR ANTIBODY POSITIVE [None]
  - COAGULOPATHY [None]
  - CONFUSIONAL STATE [None]
  - FALL [None]
  - HEPATIC FAILURE [None]
  - LIVER INJURY [None]
  - LIVER TRANSPLANT [None]
